FAERS Safety Report 5344185-1 (Version None)
Quarter: 2007Q2

REPORT INFORMATION
  Report Type: 
  Country: None (occurrence: None)
  Receive Date: 20070531
  Receipt Date: 20070531
  Transmission Date: 20071010
  Serious: Yes (Death)
  Sender: FDA-Public Use
  Company Number: None

PATIENT
  Age: 41 Year
  Sex: Male
  Weight: 70.3075 kg

DRUGS (2)
  1. LEXAPRO [Suspect]
     Indication: INSOMNIA
     Dosage: 1 TABLET EVERY DAY
     Dates: start: 20050707, end: 20050724
  2. CLONAZEPAM [Suspect]
     Dosage: 1 TABLET TWICE A DAY
     Dates: start: 20050707, end: 20050724

REACTIONS (1)
  - COMPLETED SUICIDE [None]
